FAERS Safety Report 19042458 (Version 1)
Quarter: 2021Q1

REPORT INFORMATION
  Report Type: Spontaneous
  Country: DE (occurrence: DE)
  Receive Date: 20210322
  Receipt Date: 20210322
  Transmission Date: 20210420
  Serious: Yes (Death, Other)
  Sender: FDA-Public Use
  Company Number: NVSC2021DE063257

PATIENT
  Age: 72 Year
  Sex: Female

DRUGS (4)
  1. CYCLOSPORINE. [Suspect]
     Active Substance: CYCLOSPORINE
     Indication: IMMUNOSUPPRESSANT DRUG THERAPY
  2. MYCOPHENOLATE MOFETIL. [Suspect]
     Active Substance: MYCOPHENOLATE MOFETIL
     Indication: ALLOGENIC STEM CELL TRANSPLANTATION
     Dosage: 3 G, QD
     Route: 065
  3. MYCOPHENOLATE MOFETIL. [Suspect]
     Active Substance: MYCOPHENOLATE MOFETIL
     Indication: IMMUNOSUPPRESSANT DRUG THERAPY
  4. CYCLOSPORINE. [Suspect]
     Active Substance: CYCLOSPORINE
     Indication: ALLOGENIC STEM CELL TRANSPLANTATION
     Dosage: 2 G, QD
     Route: 065

REACTIONS (4)
  - Acute graft versus host disease [Unknown]
  - Graft versus host disease [Fatal]
  - Acute graft versus host disease in intestine [Unknown]
  - Product use in unapproved indication [Unknown]
